FAERS Safety Report 6835428-3 (Version None)
Quarter: 2010Q3

REPORT INFORMATION
  Report Type: 
  Country: None (occurrence: None)
  Receive Date: 20100712
  Receipt Date: 20100712
  Transmission Date: 20110219
  Serious: Yes (Other)
  Sender: FDA-Public Use
  Company Number: None

PATIENT
  Age: 75 Year
  Sex: Male
  Weight: 90.7194 kg

DRUGS (1)
  1. DOXAZOSIN MESYLATE [Suspect]
     Dosage: 1 TABLET DAILEY

REACTIONS (1)
  - DYSPHAGIA [None]
